FAERS Safety Report 19873710 (Version 1)
Quarter: 2021Q3

REPORT INFORMATION
  Report Type: Spontaneous
  Country: CA (occurrence: CA)
  Receive Date: 20210923
  Receipt Date: 20210923
  Transmission Date: 20211014
  Serious: Yes (Hospitalization, Other)
  Sender: FDA-Public Use
  Company Number: CA-ACCORD-239548

PATIENT
  Age: 62 Year
  Sex: Male

DRUGS (5)
  1. HALOPERIDOL. [Suspect]
     Active Substance: HALOPERIDOL
     Indication: AGITATION
     Route: 065
  2. LORAZEPAM. [Suspect]
     Active Substance: LORAZEPAM
     Indication: CLONUS
     Route: 065
  3. QUETIAPINE. [Suspect]
     Active Substance: QUETIAPINE
     Indication: AGITATION
     Dosage: 4 EVERY 1 DAYS
     Route: 048
  4. MIDAZOLAM. [Suspect]
     Active Substance: MIDAZOLAM
     Indication: CLONUS
     Route: 065
  5. METOCLOPRAMIDE. [Suspect]
     Active Substance: METOCLOPRAMIDE
     Indication: MALABSORPTION
     Dosage: 4 EVERY 1 DAYS
     Route: 065

REACTIONS (3)
  - Drug ineffective [Unknown]
  - Dystonia [Unknown]
  - Depressed level of consciousness [Unknown]
